FAERS Safety Report 21005628 (Version 1)
Quarter: 2022Q2

REPORT INFORMATION
  Report Type: Report from Study
  Country: GB (occurrence: GB)
  Receive Date: 20220624
  Receipt Date: 20220624
  Transmission Date: 20220721
  Serious: Yes (Death)
  Sender: FDA-Public Use
  Company Number: GB-PFIZER INC-PV202200007510

PATIENT
  Sex: Female

DRUGS (7)
  1. CYTARABINE [Suspect]
     Active Substance: CYTARABINE
     Indication: Acute myeloid leukaemia
     Dosage: 12-HOURLY IV PUSH DAYS 1-10
     Route: 042
  2. CYTARABINE [Suspect]
     Active Substance: CYTARABINE
     Dosage: 12-HOURLY IV PUSH DAYS 1-8
     Route: 042
  3. DAUNORUBICIN [Suspect]
     Active Substance: DAUNORUBICIN
     Indication: Acute myeloid leukaemia
     Dosage: SLOW IV PUSH DAYS 1, 3, 5
     Route: 042
  4. THIOGUANINE [Suspect]
     Active Substance: THIOGUANINE
     Indication: Acute myeloid leukaemia
     Dosage: 12-HOURLY DAYS 1-10
     Route: 048
  5. THIOGUANINE [Suspect]
     Active Substance: THIOGUANINE
     Dosage: 12-HOURLY DAYS 1-8
     Route: 048
  6. METHOTREXATE [Concomitant]
     Active Substance: METHOTREXATE
     Indication: Acute myeloid leukaemia
     Dosage: TRIPLE INTRATHECAL THERAPY
     Route: 037
  7. HYDROCORTISONE [Concomitant]
     Active Substance: HYDROCORTISONE
     Indication: Acute myeloid leukaemia
     Dosage: TRIPLE INTRATHECAL THERAPY
     Route: 037

REACTIONS (2)
  - Haemothorax [Fatal]
  - Cardiac arrest [Fatal]
